FAERS Safety Report 7483389-9 (Version None)
Quarter: 2011Q2

REPORT INFORMATION
  Report Type: 
  Country: None (occurrence: None)
  Receive Date: 20110517
  Receipt Date: 20110404
  Transmission Date: 20111010
  Serious: Yes (Hospitalization, Other)
  Sender: FDA-Public Use
  Company Number: US-BAYER-201039764NA

PATIENT
  Age: 16 Year
  Sex: Female
  Weight: 61.224 kg

DRUGS (14)
  1. SOLODYN [Concomitant]
     Indication: ACNE
     Dosage: UNK
     Dates: start: 20090114, end: 20090218
  2. NAPROXEN (ALEVE) [Concomitant]
     Dosage: UNK
     Dates: start: 20091012
  3. LOESTRIN 1.5/30 [Concomitant]
     Dosage: UNK
     Dates: start: 20091012
  4. YAZ [Suspect]
     Indication: ACNE
     Route: 048
  5. RETIN-A MICRO [Concomitant]
     Dosage: UNK
     Dates: start: 20080626, end: 20081025
  6. DORIC [Concomitant]
  7. CORRECTOL [Concomitant]
  8. DOXYCYCLINE HYCLATE [Concomitant]
     Indication: ACNE
     Dosage: UNK
     Dates: start: 20080626, end: 20080915
  9. DORYX [Concomitant]
     Indication: ACNE
     Dosage: UNK
     Dates: start: 20081026, end: 20081128
  10. OVER THE COUNTER MEDICATIONS [Concomitant]
  11. CLARITIN [Concomitant]
     Dosage: UNK
     Dates: start: 20091012
  12. VANOXIDE HC [Concomitant]
     Dosage: UNK
     Dates: start: 20080630, end: 20081025
  13. CPM 8/PE 20/MSC [Concomitant]
     Dosage: UNK
     Dates: start: 20081113
  14. ACETAMINOPHEN [Concomitant]
     Dosage: UNK
     Dates: start: 20091012

REACTIONS (2)
  - GALLBLADDER DISORDER [None]
  - PAIN [None]
